FAERS Safety Report 9011074 (Version 3)
Quarter: 2013Q1

REPORT INFORMATION
  Report Type: Spontaneous
  Country: CO (occurrence: CO)
  Receive Date: 20130109
  Receipt Date: 20130130
  Transmission Date: 20140127
  Serious: Yes (Disabling, Other)
  Sender: FDA-Public Use
  Company Number: CO-ELI_LILLY_AND_COMPANY-CO201211007865

PATIENT
  Age: 64 Year
  Sex: Female

DRUGS (7)
  1. FORTEO [Suspect]
     Indication: OSTEOPOROSIS
     Dosage: 20 UG, QD
     Route: 058
     Dates: start: 201210, end: 20121122
  2. ENALAPRIL [Concomitant]
     Dosage: UNK, UNKNOWN
     Route: 065
  3. ATORVASTATIN [Concomitant]
     Dosage: UNK, UNKNOWN
     Route: 065
  4. AMLODIPINE [Concomitant]
     Dosage: UNK, UNKNOWN
     Route: 065
  5. ACETAMINOPHEN [Concomitant]
     Dosage: UNK, UNKNOWN
     Route: 065
  6. NORFLOXACIN [Concomitant]
     Dosage: UNK, UNKNOWN
     Route: 065
  7. CAPRIMIDA D [Concomitant]
     Indication: SUPPLEMENTATION THERAPY
     Dosage: UNK, UNKNOWN
     Route: 065

REACTIONS (17)
  - Urinary retention [Recovering/Resolving]
  - Deafness [Recovering/Resolving]
  - Renal atrophy [Recovering/Resolving]
  - Depressed mood [Recovering/Resolving]
  - Sweat gland disorder [Recovering/Resolving]
  - Ear discomfort [Recovering/Resolving]
  - Hypersensitivity [Recovering/Resolving]
  - Nasal congestion [Recovering/Resolving]
  - Night sweats [Recovering/Resolving]
  - Weight increased [Recovering/Resolving]
  - Inflammation [Recovering/Resolving]
  - Pain [Recovering/Resolving]
  - Arthralgia [Recovering/Resolving]
  - Insomnia [Recovering/Resolving]
  - Cystitis bacterial [Recovered/Resolved]
  - Drug hypersensitivity [Recovering/Resolving]
  - Intentional drug misuse [Recovered/Resolved]
